FAERS Safety Report 7127851-7 (Version None)
Quarter: 2010Q4

REPORT INFORMATION
  Report Type: 
  Country: None (occurrence: None)
  Receive Date: 20101130
  Receipt Date: 20101118
  Transmission Date: 20110411
  Serious: Yes (Life-Threatening, Hospitalization)
  Sender: FDA-Public Use
  Company Number: FR-PFIZER INC-2010157565

PATIENT
  Age: 65 Year
  Sex: Male

DRUGS (10)
  1. TAHOR [Suspect]
     Dosage: UNK
     Route: 048
     Dates: end: 20100801
  2. CORDARONE [Suspect]
     Indication: MYOCARDIAL INFARCTION
     Dosage: 200 MG, 1X/DAY
     Route: 048
     Dates: start: 20091201, end: 20100801
  3. ALDACTONE [Concomitant]
     Dosage: UNK
  4. TAREG [Concomitant]
     Dosage: UNK
  5. RAMIPRIL [Concomitant]
     Dosage: UNK
  6. KARDEGIC [Concomitant]
     Dosage: UNK
  7. PLAVIX [Concomitant]
     Dosage: UNK
  8. NEXIUM [Concomitant]
     Dosage: UNK
  9. CARDENSIEL [Concomitant]
     Indication: MYOCARDIAL INFARCTION
     Dosage: 10 MG, 1X/DAY
     Dates: start: 20091201, end: 20100801
  10. CARDENSIEL [Concomitant]
     Dosage: UNK
     Dates: start: 20100908

REACTIONS (1)
  - INTERSTITIAL LUNG DISEASE [None]
